FAERS Safety Report 20338519 (Version 1)
Quarter: 2022Q1

REPORT INFORMATION
  Report Type: Spontaneous
  Country: US (occurrence: None)
  Receive Date: 20220116
  Receipt Date: 20220116
  Transmission Date: 20220424
  Serious: No
  Sender: FDA-Public Use
  Company Number: 2022A015647

PATIENT
  Age: 29781 Day
  Sex: Male
  Weight: 78 kg

DRUGS (1)
  1. LOKELMA [Suspect]
     Active Substance: SODIUM ZIRCONIUM CYCLOSILICATE
     Indication: Blood potassium increased
     Route: 048
     Dates: start: 202104

REACTIONS (2)
  - Blood potassium increased [Unknown]
  - Product use issue [Unknown]

NARRATIVE: CASE EVENT DATE: 20211231
